FAERS Safety Report 4839038-9 (Version None)
Quarter: 2005Q4

REPORT INFORMATION
  Report Type: 
  Country: None (occurrence: None)
  Receive Date: 20051031
  Receipt Date: 20050831
  Transmission Date: 20060501
  Serious: No
  Sender: FDA-Public Use
  Company Number: 200516466US

PATIENT
  Sex: Male

DRUGS (3)
  1. KETEK [Suspect]
     Indication: HELICOBACTER INFECTION
  2. KETEK [Suspect]
     Indication: RESPIRATORY TRACT INFECTION
  3. LIPITOR [Concomitant]

REACTIONS (3)
  - CHEST DISCOMFORT [None]
  - DYSPEPSIA [None]
  - DYSPNOEA [None]
